FAERS Safety Report 13869461 (Version 1)
Quarter: 2017Q3

REPORT INFORMATION
  Report Type: Spontaneous
  Country: ES (occurrence: ES)
  Receive Date: 20170815
  Receipt Date: 20170815
  Transmission Date: 20171127
  Serious: Yes (Hospitalization, Other)
  Sender: FDA-Public Use
  Company Number: ES-IMPAX LABORATORIES, INC-2017-IPXL-02022

PATIENT
  Age: 51 Year
  Sex: Male
  Weight: 86 kg

DRUGS (9)
  1. DACORTIN [Interacting]
     Active Substance: PREDNISONE
     Dosage: 30 MG, DAILY AT BREAKFAST
     Route: 048
  2. ULUNAR [Concomitant]
     Indication: PRODUCT USED FOR UNKNOWN INDICATION
     Dosage: 85/43 MCG 30 HARD CAPSULES + 1 INHALER POWDER INH.
     Route: 065
  3. PREGABALIN. [Concomitant]
     Active Substance: PREGABALIN
     Indication: PRODUCT USED FOR UNKNOWN INDICATION
     Dosage: 75 MG, EVERY 12HR
     Route: 065
  4. ALBENZA [Suspect]
     Active Substance: ALBENDAZOLE
     Indication: PULMONARY ECHINOCOCCIASIS
     Dosage: 400 MG, EVERY 12 HOURS, 60 TABLETS
     Route: 048
     Dates: start: 20160919, end: 20170619
  5. DACORTIN [Interacting]
     Active Substance: PREDNISONE
     Indication: CHRONIC OBSTRUCTIVE PULMONARY DISEASE
     Dosage: 30 MG WITH LOWERED PATTERN UNTIL 10 MG/DAY
     Route: 048
     Dates: start: 20170502
  6. DACORTIN [Interacting]
     Active Substance: PREDNISONE
     Dosage: 20 MG, DAILY AT BREAKFAST
     Route: 048
  7. RAMIPRIL. [Concomitant]
     Active Substance: RAMIPRIL
     Indication: PRODUCT USED FOR UNKNOWN INDICATION
     Dosage: 5 MG, UNK
     Route: 065
  8. CARDURAN NEO [Concomitant]
     Active Substance: DOXAZOSIN MESYLATE
     Indication: PRODUCT USED FOR UNKNOWN INDICATION
     Dosage: 4 MG, 28, UNK
     Route: 065
  9. CALCIUM +D3 [Concomitant]
     Active Substance: CALCIUM\CHOLECALCIFEROL
     Indication: PRODUCT USED FOR UNKNOWN INDICATION
     Dosage: 1000MG/880UI
     Route: 065

REACTIONS (3)
  - Agranulocytosis [Recovered/Resolved]
  - Drug interaction [Recovered/Resolved]
  - Bone marrow failure [Recovered/Resolved]

NARRATIVE: CASE EVENT DATE: 20170619
